FAERS Safety Report 24288276 (Version 1)
Quarter: 2024Q3

REPORT INFORMATION
  Report Type: Spontaneous
  Country: CN (occurrence: CN)
  Receive Date: 20240905
  Receipt Date: 20240905
  Transmission Date: 20241016
  Serious: Yes (Hospitalization, Disabling)
  Sender: BEIGENE
  Company Number: CN-BEIGENE-BGN-2024-013682

PATIENT

DRUGS (19)
  1. TISLELIZUMAB [Suspect]
     Active Substance: TISLELIZUMAB
     Indication: Lung adenocarcinoma
     Dosage: UNK
     Dates: start: 20240228
  2. TISLELIZUMAB [Suspect]
     Active Substance: TISLELIZUMAB
     Dosage: 200 MILLIGRAM D1, Q3WK
     Dates: start: 20240322
  3. TISLELIZUMAB [Suspect]
     Active Substance: TISLELIZUMAB
     Dosage: 200 MILLIGRAM D1, Q3WK
     Dates: start: 20240415
  4. TISLELIZUMAB [Suspect]
     Active Substance: TISLELIZUMAB
     Dosage: 200 MILLIGRAM D1, Q3WK
     Dates: start: 20240508
  5. TISLELIZUMAB [Suspect]
     Active Substance: TISLELIZUMAB
     Dosage: 200 MILLIGRAM D1, Q3WK
     Dates: start: 20240601
  6. TISLELIZUMAB [Suspect]
     Active Substance: TISLELIZUMAB
     Dosage: 200 MILLIGRAM D1, Q3WK
     Dates: start: 20240626
  7. TISLELIZUMAB [Suspect]
     Active Substance: TISLELIZUMAB
     Dosage: 200 MILLIGRAM
     Route: 041
     Dates: start: 20240821
  8. CISPLATIN [Suspect]
     Active Substance: CISPLATIN
     Indication: Lung adenocarcinoma
     Dosage: UNK
     Dates: start: 20240228
  9. CISPLATIN [Suspect]
     Active Substance: CISPLATIN
     Dosage: 30 MILLIGRAM D1-D3, Q3WK
     Dates: start: 20240322
  10. CISPLATIN [Suspect]
     Active Substance: CISPLATIN
     Dosage: 30 MILLIGRAM D1-D3, Q3WK
     Dates: start: 20240415
  11. CISPLATIN [Suspect]
     Active Substance: CISPLATIN
     Dosage: 30 MILLIGRAM D1-D3, Q3WK
     Dates: start: 20240508
  12. CISPLATIN [Suspect]
     Active Substance: CISPLATIN
     Dosage: 30 MILLIGRAM D1-D3, Q3WK
     Dates: start: 20240601
  13. CISPLATIN [Suspect]
     Active Substance: CISPLATIN
     Dosage: 30 MILLIGRAM D1-D3, Q3WK
     Dates: start: 20240626
  14. PEMETREXED DISODIUM [Concomitant]
     Active Substance: PEMETREXED DISODIUM
     Indication: Lung adenocarcinoma
     Dosage: UNK
     Dates: start: 20240228
  15. PEMETREXED DISODIUM [Concomitant]
     Active Substance: PEMETREXED DISODIUM
     Dosage: 750 MILLIGRAM D1, Q3WK
     Dates: start: 20240322
  16. PEMETREXED DISODIUM [Concomitant]
     Active Substance: PEMETREXED DISODIUM
     Dosage: 750 MILLIGRAM D1, Q3WK
     Dates: start: 20240415
  17. PEMETREXED DISODIUM [Concomitant]
     Active Substance: PEMETREXED DISODIUM
     Dosage: 750 MILLIGRAM D1, Q3WK
     Dates: start: 20240508
  18. PEMETREXED DISODIUM [Concomitant]
     Active Substance: PEMETREXED DISODIUM
     Dosage: 750 MILLIGRAM D1, Q3WK
     Dates: start: 20240601
  19. PEMETREXED DISODIUM [Concomitant]
     Active Substance: PEMETREXED DISODIUM
     Dosage: 750 MILLIGRAM D1, Q3WK
     Dates: start: 20240626

REACTIONS (1)
  - Myelosuppression [Recovering/Resolving]
